FAERS Safety Report 8179615-3 (Version None)
Quarter: 2012Q1

REPORT INFORMATION
  Report Type: 
  Country: None (occurrence: None)
  Receive Date: 20120302
  Receipt Date: 20120222
  Transmission Date: 20120608
  Serious: Yes (Other)
  Sender: FDA-Public Use
  Company Number: CN-BAYER-2012-015888

PATIENT
  Age: 82 Year
  Sex: Male

DRUGS (3)
  1. CAPTOPRIL [Concomitant]
     Dosage: 25 MG, TID
  2. NITRENDIPINE [Concomitant]
     Dosage: 10 MG, TID
  3. NIFEDIPINE [Suspect]
     Indication: HYPERTENSION
     Dosage: 10 MG, QD
     Route: 060

REACTIONS (8)
  - DYSPNOEA [None]
  - HYPOTENSION [None]
  - CHEST DISCOMFORT [None]
  - VISION BLURRED [None]
  - COLD SWEAT [None]
  - FEELING ABNORMAL [None]
  - PERIPHERAL COLDNESS [None]
  - CYANOSIS [None]
